FAERS Safety Report 6180441-5 (Version None)
Quarter: 2009Q2

REPORT INFORMATION
  Report Type: 
  Country: None (occurrence: None)
  Receive Date: 20090506
  Receipt Date: 20090427
  Transmission Date: 20091009
  Serious: Yes (Other)
  Sender: FDA-Public Use
  Company Number: US-JNJFOC-20061006162

PATIENT
  Sex: Male

DRUGS (5)
  1. RISPERDAL [Suspect]
     Indication: ATTENTION DEFICIT/HYPERACTIVITY DISORDER
  2. RISPERDAL [Suspect]
     Indication: AGGRESSION
  3. ADDERALL 10 [Concomitant]
     Route: 048
  4. SEROQUEL [Concomitant]
  5. CONCERTA [Concomitant]
     Indication: PSYCHOMOTOR HYPERACTIVITY

REACTIONS (3)
  - DIABETES MELLITUS [None]
  - SEDATION [None]
  - WEIGHT INCREASED [None]
